FAERS Safety Report 11686051 (Version 1)
Quarter: 2015Q4

REPORT INFORMATION
  Report Type: Spontaneous
  Country: SK (occurrence: SK)
  Receive Date: 20151030
  Receipt Date: 20151030
  Transmission Date: 20160304
  Serious: Yes (Hospitalization, Other)
  Sender: FDA-Public Use
  Company Number: SK-BAYER-2015-451303

PATIENT
  Age: 34 Year
  Sex: Female

DRUGS (2)
  1. ALGIFEN [Concomitant]
     Dosage: UNK
     Route: 048
     Dates: start: 20150928
  2. JAYDESS [Suspect]
     Active Substance: LEVONORGESTREL
     Dosage: 14 MCG/24HR, CONT
     Route: 015
     Dates: start: 20150910, end: 20151012

REACTIONS (2)
  - Anaphylactic reaction [Recovered/Resolved]
  - Genital haemorrhage [Recovered/Resolved]

NARRATIVE: CASE EVENT DATE: 2015
